FAERS Safety Report 9409687 (Version 1)
Quarter: 2013Q3

REPORT INFORMATION
  Report Type: Spontaneous
  Country: US (occurrence: US)
  Receive Date: 20130719
  Receipt Date: 20130719
  Transmission Date: 20140515
  Serious: Yes (Other)
  Sender: FDA-Public Use
  Company Number: PHEH2013US015094

PATIENT
  Sex: Female

DRUGS (9)
  1. RECLAST [Suspect]
     Dosage: UNK UKN, UNK
     Route: 042
     Dates: end: 20130709
  2. RECLAST [Suspect]
     Dosage: UNK UKN, UNK
     Route: 042
     Dates: end: 20130709
  3. RECLAST [Suspect]
     Dosage: UNK UKN, UNK
     Route: 042
     Dates: start: 20130709, end: 20130709
  4. CALCIUM [Concomitant]
     Dosage: UNK UKN, TID
     Route: 048
  5. ULTRA FLORA IB [Concomitant]
  6. VIT D3 [Concomitant]
     Dosage: 5000 UKN, UNK
     Route: 048
  7. PRESERVISION [Concomitant]
  8. AMLODIPINE [Concomitant]
     Indication: HYPERTENSION
     Dosage: 2.5 MG, QD
     Route: 048
  9. ASA [Concomitant]
     Dosage: 81 MG, QW5
     Route: 048

REACTIONS (3)
  - Coeliac disease [Unknown]
  - Burning sensation [Unknown]
  - Rash pruritic [Unknown]
